FAERS Safety Report 25112055 (Version 1)
Quarter: 2025Q1

REPORT INFORMATION
  Report Type: Report from Study
  Country: US (occurrence: US)
  Receive Date: 20250324
  Receipt Date: 20250324
  Transmission Date: 20250408
  Serious: Yes (Other)
  Sender: ALEXION PHARMACEUTICALS
  Company Number: US-ASTRAZENECA-202503USA015839US

PATIENT
  Age: 39 Year

DRUGS (1)
  1. STRENSIQ [Suspect]
     Active Substance: ASFOTASE ALFA
     Indication: Phosphorus metabolism disorder
     Dosage: 2 MILLIGRAM/KILOGRAM, TIW
     Route: 065

REACTIONS (6)
  - Headache [Recovered/Resolved]
  - Feeling of body temperature change [Unknown]
  - Taste disorder [Unknown]
  - Injection site erythema [Unknown]
  - Burning sensation [Unknown]
  - Injection site warmth [Unknown]
